FAERS Safety Report 17877684 (Version 1)
Quarter: 2020Q2

REPORT INFORMATION
  Report Type: Spontaneous
  Country: US (occurrence: US)
  Receive Date: 20200609
  Receipt Date: 20200609
  Transmission Date: 20200714
  Serious: No
  Sender: FDA-Public Use
  Company Number: US-GILEAD-2020-0469772

PATIENT
  Age: 65 Year
  Sex: Female

DRUGS (6)
  1. DEXILANT [Concomitant]
     Active Substance: DEXLANSOPRAZOLE
  2. VITAMIN D [VITAMIN D NOS] [Concomitant]
     Active Substance: VITAMIN D NOS
  3. ATORVASTATIN CALCIUM. [Concomitant]
     Active Substance: ATORVASTATIN CALCIUM
  4. VEMLIDY [Suspect]
     Active Substance: TENOFOVIR ALAFENAMIDE FUMARATE
     Indication: CHRONIC HEPATITIS B
     Dosage: 1 DOSAGE FORM, QD
     Route: 048
  5. VEMLIDY [Suspect]
     Active Substance: TENOFOVIR ALAFENAMIDE FUMARATE
     Dosage: 1 DOSAGE FORM, QD
     Route: 048
  6. SERTRALINE HYDROCHLORIDE. [Concomitant]
     Active Substance: SERTRALINE HYDROCHLORIDE

REACTIONS (1)
  - Product dose omission [Recovered/Resolved]
